FAERS Safety Report 22024289 (Version 3)
Quarter: 2023Q1

REPORT INFORMATION
  Report Type: Spontaneous
  Country: US (occurrence: US)
  Receive Date: 20230223
  Receipt Date: 20230301
  Transmission Date: 20230418
  Serious: No
  Sender: FDA-Public Use
  Company Number: US-002147023-NVSC2023US038211

PATIENT
  Sex: Female

DRUGS (2)
  1. XIIDRA [Suspect]
     Active Substance: LIFITEGRAST
     Indication: Product used for unknown indication
     Dosage: 1 UNK
     Route: 047
     Dates: start: 20230213
  2. XIIDRA [Suspect]
     Active Substance: LIFITEGRAST
     Dosage: 1 DRP, BID (1 DROP/EYE)
     Route: 047
     Dates: start: 20230213

REACTIONS (3)
  - Eye pain [Unknown]
  - Product use complaint [Unknown]
  - Product dose omission issue [Unknown]
